FAERS Safety Report 8214648-X (Version None)
Quarter: 2012Q1

REPORT INFORMATION
  Report Type: 
  Country: None (occurrence: None)
  Receive Date: 20120316
  Receipt Date: 20120308
  Transmission Date: 20120608
  Serious: Yes (Other)
  Sender: FDA-Public Use
  Company Number: GB-B.I. PHARMACEUTICALS,INC./RIDGEFIELD-2012-UK-00362UK

PATIENT
  Sex: Male

DRUGS (2)
  1. PRADAXA [Suspect]
     Indication: CEREBROVASCULAR ACCIDENT PROPHYLAXIS
     Dosage: UP TO 50 TABLETS
  2. OTHER [Suspect]

REACTIONS (3)
  - VOMITING [None]
  - INTENTIONAL OVERDOSE [None]
  - SUICIDAL BEHAVIOUR [None]
